FAERS Safety Report 8135998-1 (Version None)
Quarter: 2012Q1

REPORT INFORMATION
  Report Type: 
  Country: None (occurrence: None)
  Receive Date: 20120214
  Receipt Date: 20120208
  Transmission Date: 20120608
  Serious: Yes (Other)
  Sender: FDA-Public Use
  Company Number: US-BAYER-2012-013736

PATIENT
  Age: 35 Year
  Sex: Female

DRUGS (5)
  1. LEVOTHYROXINE SODIUM [Concomitant]
     Dosage: 100 ?G, QD
  2. MOBIC [Concomitant]
     Dosage: 7.5 MG, PRN
  3. YASMIN [Suspect]
  4. YAZ [Suspect]
  5. EFFEXOR [Concomitant]
     Dosage: 150 MG, QD

REACTIONS (1)
  - DEEP VEIN THROMBOSIS [None]
